FAERS Safety Report 25263602 (Version 3)
Quarter: 2025Q2

REPORT INFORMATION
  Report Type: Spontaneous
  Country: US (occurrence: US)
  Receive Date: 20250502
  Receipt Date: 20250507
  Transmission Date: 20250716
  Serious: Yes (Other)
  Sender: PFIZER
  Company Number: US-PFIZER INC-202500091458

PATIENT
  Age: 5 Decade
  Sex: Female

DRUGS (4)
  1. BRAFTOVI [Suspect]
     Active Substance: ENCORAFENIB
     Indication: Metastatic malignant melanoma
  2. BRAFTOVI [Suspect]
     Active Substance: ENCORAFENIB
     Dates: start: 202411, end: 202504
  3. MEKTOVI [Suspect]
     Active Substance: BINIMETINIB
     Indication: Metastatic malignant melanoma
  4. MEKTOVI [Suspect]
     Active Substance: BINIMETINIB
     Dates: start: 202411, end: 202504

REACTIONS (3)
  - Drug-induced liver injury [Not Recovered/Not Resolved]
  - Hepatic enzyme increased [Recovered/Resolved]
  - Fatigue [Not Recovered/Not Resolved]

NARRATIVE: CASE EVENT DATE: 20250401
